FAERS Safety Report 22267406 (Version 1)
Quarter: 2023Q2

REPORT INFORMATION
  Report Type: Spontaneous
  Country: US (occurrence: US)
  Receive Date: 20230428
  Receipt Date: 20230428
  Transmission Date: 20230722
  Serious: No
  Sender: FDA-Public Use
  Company Number: US-Teikoku Pharma USA-TPU2023-00217

PATIENT
  Sex: Female
  Weight: 61.290 kg

DRUGS (2)
  1. LIDODERM [Suspect]
     Active Substance: LIDOCAINE
     Indication: Back pain
     Route: 061
  2. LIDOCAINE PATCH [Suspect]
     Active Substance: LIDOCAINE
     Indication: Back pain
     Route: 061

REACTIONS (8)
  - Rash pruritic [Unknown]
  - Spinal operation [Unknown]
  - Neck surgery [Unknown]
  - Shoulder operation [Unknown]
  - Upper limb fracture [Unknown]
  - Knee arthroplasty [Unknown]
  - Foot fracture [Unknown]
  - Ankle fracture [Unknown]
